FAERS Safety Report 9522000 (Version 3)
Quarter: 2013Q4

REPORT INFORMATION
  Report Type: Report from Study
  Country: US (occurrence: US)
  Receive Date: 20130913
  Receipt Date: 20131011
  Transmission Date: 20140711
  Serious: Yes (Hospitalization)
  Sender: FDA-Public Use
  Company Number: US-ROCHE-1253978

PATIENT
  Age: 63 Year
  Sex: Male
  Weight: 75 kg

DRUGS (7)
  1. CAPECITABINE [Suspect]
     Indication: CHOLANGIOCARCINOMA
     Route: 048
     Dates: start: 20121016, end: 20130902
  2. BEVACIZUMAB [Suspect]
     Indication: CHOLANGIOCARCINOMA
     Route: 042
     Dates: start: 20121016, end: 20130826
  3. GEMCITABINE [Suspect]
     Indication: CHOLANGIOCARCINOMA
     Dosage: FREQUENCY- 1, 8 DAYS
     Route: 065
     Dates: start: 20121016, end: 20130826
  4. OXYCODONE [Concomitant]
     Dosage: PRN
     Route: 048
     Dates: start: 20130715
  5. PROCHLORPERAZINE [Concomitant]
     Dosage: PRN
     Route: 048
     Dates: start: 20121016
  6. VANCOMYCIN [Concomitant]
  7. CEFEPIME [Concomitant]

REACTIONS (2)
  - Sepsis [Recovering/Resolving]
  - Hepatic encephalopathy [Recovering/Resolving]
